FAERS Safety Report 10063513 (Version 1)
Quarter: 2014Q2

REPORT INFORMATION
  Report Type: Spontaneous
  Country: DE (occurrence: DE)
  Receive Date: 20140407
  Receipt Date: 20140407
  Transmission Date: 20141212
  Serious: Yes (Hospitalization, Other)
  Sender: FDA-Public Use
  Company Number: DE-ELI_LILLY_AND_COMPANY-DE201403010312

PATIENT
  Age: 74 Year
  Sex: Male

DRUGS (5)
  1. HUMINSULIN REGULAR [Suspect]
     Indication: DIABETES MELLITUS
     Route: 058
  2. HUMALOG LISPRO [Suspect]
     Indication: DIABETES MELLITUS
     Route: 058
  3. INNOLET [Concomitant]
     Route: 065
  4. ACE HEMMER [Concomitant]
  5. TORASEMID [Concomitant]
     Dosage: 10 MG, UNK

REACTIONS (5)
  - Gastrointestinal neoplasm [Unknown]
  - Gastric perforation [Unknown]
  - Dyspnoea [Not Recovered/Not Resolved]
  - Soft tissue disorder [Unknown]
  - Oedema peripheral [Not Recovered/Not Resolved]
